FAERS Safety Report 7806908-9 (Version None)
Quarter: 2011Q4

REPORT INFORMATION
  Report Type: 
  Country: None (occurrence: None)
  Receive Date: 20111011
  Receipt Date: 20111004
  Transmission Date: 20120403
  Serious: Yes (Hospitalization)
  Sender: FDA-Public Use
  Company Number: PHBS2010DE00499

PATIENT
  Sex: Male
  Weight: 77 kg

DRUGS (11)
  1. ICANDRA [Suspect]
     Indication: DIABETES MELLITUS
     Dosage: 1000 MG,
     Route: 048
     Dates: start: 20091124
  2. ZODIN [Concomitant]
     Indication: CORONARY ARTERY DISEASE
     Route: 048
     Dates: start: 20080430
  3. RASILEZ [Suspect]
     Dosage: 300 MG,
     Route: 048
     Dates: start: 20080520
  4. HYDROCHLOROTHIAZIDE [Suspect]
     Dosage: UNK
     Dates: start: 20091015
  5. ATACAND [Concomitant]
     Indication: HYPERTENSION
     Dosage: 32 MG,
     Route: 048
     Dates: start: 20080403
  6. HYDROCHLOROTHIAZIDE [Suspect]
     Dosage: 25 MG,
     Route: 048
     Dates: start: 20080205, end: 20090317
  7. BISOPROLOL [Concomitant]
     Indication: CORONARY ARTERY DISEASE
     Route: 048
     Dates: start: 20080205
  8. AMLODIPINE [Concomitant]
     Indication: HYPERTENSION
     Dosage: 10 MG,/DAY
     Route: 048
     Dates: start: 20080403
  9. ASPIRIN [Concomitant]
     Indication: CORONARY ARTERY DISEASE
     Dosage: 100 MG,
     Route: 048
     Dates: start: 20080205
  10. CLOPIDOGREL [Concomitant]
     Indication: CORONARY ARTERY DISEASE
     Dosage: 75 MG,
     Route: 048
     Dates: start: 20080205
  11. AMLODIPINE [Concomitant]
     Dates: start: 20110504

REACTIONS (1)
  - ANGINA PECTORIS [None]
